FAERS Safety Report 4843777-3 (Version None)
Quarter: 2005Q4

REPORT INFORMATION
  Report Type: 
  Country: None (occurrence: None)
  Receive Date: 20051202
  Receipt Date: 20051122
  Transmission Date: 20060501
  Serious: Yes (Other)
  Sender: FDA-Public Use
  Company Number: BR-JNJFOC-20051103173

PATIENT
  Age: 54 Year
  Sex: Female

DRUGS (6)
  1. INFLIXIMAB [Suspect]
     Route: 042
  2. INFLIXIMAB [Suspect]
     Indication: RHEUMATOID ARTHRITIS
     Route: 042
  3. METHOTREXATE [Concomitant]
     Route: 048
  4. NAPROXEN [Concomitant]
     Route: 048
  5. HYDROCORTISONE [Concomitant]
     Route: 048
  6. CHLOROQUINE PHOSPHATE [Concomitant]
     Route: 048

REACTIONS (6)
  - CHILLS [None]
  - CYANOSIS [None]
  - DYSPNOEA [None]
  - HEADACHE [None]
  - INFUSION RELATED REACTION [None]
  - TACHYCARDIA [None]
